FAERS Safety Report 13860690 (Version 1)
Quarter: 2017Q3

REPORT INFORMATION
  Report Type: Spontaneous
  Country: US (occurrence: US)
  Receive Date: 20170811
  Receipt Date: 20170811
  Transmission Date: 20171127
  Serious: Yes (Death)
  Sender: FDA-Public Use
  Company Number: None

PATIENT
  Age: 81 Year
  Sex: Female

DRUGS (1)
  1. PROCRIT [Suspect]
     Active Substance: ERYTHROPOIETIN
     Indication: BLOOD DISORDER
     Dosage: RX NOT FILLED BY WSP AS OF YET??40,000U
     Route: 058

REACTIONS (1)
  - Death [None]

NARRATIVE: CASE EVENT DATE: 2017
